FAERS Safety Report 9395581 (Version 1)
Quarter: 2013Q3

REPORT INFORMATION
  Report Type: Spontaneous
  Country: TR (occurrence: None)
  Receive Date: 20130705
  Receipt Date: 20130705
  Transmission Date: 20140515
  Serious: Yes (Other)
  Sender: FDA-Public Use
  Company Number: 2013P1010814

PATIENT
  Age: 38 Year
  Sex: Male

DRUGS (2)
  1. VALPROATE SODIUM [Suspect]
     Indication: BIPOLAR DISORDER
  2. RISPERIDONE(CON.) [Concomitant]

REACTIONS (2)
  - Pericardial effusion [None]
  - Pleural effusion [None]
